FAERS Safety Report 5287067-6 (Version None)
Quarter: 2007Q2

REPORT INFORMATION
  Report Type: 
  Country: None (occurrence: None)
  Receive Date: 20070404
  Receipt Date: 20060906
  Transmission Date: 20071010
  Serious: Yes (Other)
  Sender: FDA-Public Use
  Company Number: US-PFIZER INC-2006106009

PATIENT
  Sex: Female
  Weight: 90.7 kg

DRUGS (5)
  1. LIPITOR [Suspect]
     Indication: CATHETERISATION CARDIAC
     Route: 048
     Dates: start: 20060822, end: 20060824
  2. LIPITOR [Suspect]
     Indication: STENT PLACEMENT
  3. NORVASC [Concomitant]
  4. GLIPIZIDE [Concomitant]
  5. ASPIRIN [Concomitant]
     Dates: start: 19980101

REACTIONS (6)
  - DISCOMFORT [None]
  - FATIGUE [None]
  - GAIT DISTURBANCE [None]
  - MOBILITY DECREASED [None]
  - PAIN IN EXTREMITY [None]
  - TREMOR [None]
